FAERS Safety Report 14559664 (Version 1)
Quarter: 2018Q1

REPORT INFORMATION
  Report Type: Spontaneous
  Country: US (occurrence: US)
  Receive Date: 20180221
  Receipt Date: 20180221
  Transmission Date: 20180509
  Serious: No
  Sender: FDA-Public Use
  Company Number: US-JNJFOC-20180203491

PATIENT
  Sex: Female
  Weight: 56.7 kg

DRUGS (1)
  1. TYLENOL EXTRA STRENGTH [Suspect]
     Active Substance: ACETAMINOPHEN
     Indication: PAIN
     Dosage: EVERY 6-7 HOURS
     Route: 048
     Dates: start: 201801, end: 20180201

REACTIONS (1)
  - Drug ineffective [Unknown]
